FAERS Safety Report 6724087-6 (Version None)
Quarter: 2010Q2

REPORT INFORMATION
  Report Type: 
  Country: None (occurrence: None)
  Receive Date: 20100513
  Receipt Date: 20100503
  Transmission Date: 20101027
  Serious: Yes (Death)
  Sender: FDA-Public Use
  Company Number: US-ROCHE-697671

PATIENT
  Sex: Male
  Weight: 57.6 kg

DRUGS (3)
  1. AVASTIN [Suspect]
     Indication: RECTAL CANCER METASTATIC
     Dosage: TOTAL DOSE: 295 MG, ROUTE: INTRAVENOUS INTRAVENOUS PIGGYBACK, LAST DOSE ON 30 MARCH 2010
     Route: 042
     Dates: start: 20100316
  2. OXALIPLATIN [Concomitant]
     Dosage: ROUTE: INTRAVENOUS PIGGYBACK
     Route: 042
     Dates: start: 20100330
  3. LEUCOVORIN CALCIUM [Concomitant]
     Dosage: ROUTE: INTRAVENOUS PIGGYBACK
     Route: 042
     Dates: start: 20100330

REACTIONS (1)
  - RECTAL HAEMORRHAGE [None]
